FAERS Safety Report 10206735 (Version 1)
Quarter: 2014Q2

REPORT INFORMATION
  Report Type: Spontaneous
  Country: ES (occurrence: ES)
  Receive Date: 20140530
  Receipt Date: 20140530
  Transmission Date: 20141212
  Serious: Yes (Other)
  Sender: FDA-Public Use
  Company Number: ES-SA-2014SA067135

PATIENT
  Sex: Female

DRUGS (10)
  1. ZOLPIDEM [Suspect]
     Indication: DEPRESSION
     Route: 048
     Dates: start: 2014, end: 20140416
  2. TRANXILIUM [Suspect]
     Indication: ANXIETY
     Route: 048
     Dates: start: 2014, end: 20140416
  3. TRAMADOL [Concomitant]
     Indication: ARTHRALGIA
     Dosage: FORM: PROLONGED-RELEASE TABLET
     Route: 048
     Dates: end: 20140416
  4. FENTANILO MATRIX WINTHROP [Concomitant]
     Dosage: PARCHE
     Route: 062
     Dates: end: 20140416
  5. ALPRAZOLAM [Concomitant]
     Indication: ANXIETY
     Route: 048
  6. TRANKIMAZIN [Concomitant]
     Indication: DEPRESSION
     Dosage: FORM: PROLONGED-RELEASE TABLET
     Route: 048
  7. NOLOTIL [Concomitant]
     Indication: DEPRESSION
     Route: 048
  8. ESTROGEN W/MEDROXYPROGESTERON [Concomitant]
     Route: 048
  9. PARACETAMOL [Concomitant]
     Indication: ARTHRALGIA
     Route: 048
  10. LORMETAZEPAM [Concomitant]
     Indication: DEPRESSION
     Route: 048
     Dates: end: 20140416

REACTIONS (3)
  - Disorientation [Unknown]
  - Amnesia [Unknown]
  - Aggression [Recovering/Resolving]
